FAERS Safety Report 13111045 (Version 4)
Quarter: 2018Q4

REPORT INFORMATION
  Report Type: Spontaneous
  Country: JP (occurrence: JP)
  Receive Date: 20170112
  Receipt Date: 20181025
  Transmission Date: 20190204
  Serious: Yes (Death)
  Sender: FDA-Public Use
  Company Number: JP-DSJP-DSJ-2017-100373

PATIENT

DRUGS (12)
  1. LIXIANA TABLETS 30MG [Suspect]
     Active Substance: EDOXABAN TOSYLATE
     Indication: DEEP VEIN THROMBOSIS
     Dosage: 30 MG, QD
     Route: 048
     Dates: start: 20150320
  2. PRALIA SUBCUTANEOUS INJECTION 60MG SYRINGE [Concomitant]
     Active Substance: DENOSUMAB
     Indication: OSTEOPOROSIS
     Dosage: 60 MG, UNK
     Route: 058
     Dates: start: 20131128
  3. SELBEX [Concomitant]
     Active Substance: TEPRENONE
     Indication: PROPHYLAXIS AGAINST GASTROINTESTINAL ULCER
     Dosage: 50 MG, TID
     Route: 048
     Dates: start: 20080528
  4. SYMBICORT [Concomitant]
     Active Substance: BUDESONIDE\FORMOTEROL FUMARATE DIHYDRATE
     Indication: ASTHMA
     Dosage: UNK, BID
     Route: 055
     Dates: start: 20161222
  5. PREDNISOLONE. [Suspect]
     Active Substance: PREDNISOLONE
     Indication: RHEUMATOID VASCULITIS
     Dosage: 2 MG, QD
     Route: 048
     Dates: start: 1996
  6. CRAVIT TABLETS 500MG [Concomitant]
     Indication: GASTROENTERITIS
     Dosage: 500 MG, QD
     Route: 048
     Dates: start: 20161222
  7. LOXONIN TABLETS 60MG [Concomitant]
     Active Substance: LOXOPROFEN
     Indication: RHEUMATOID VASCULITIS
     Dosage: 60 MG, TID
     Route: 048
     Dates: start: 20080525
  8. PREDONINE [Suspect]
     Active Substance: PREDNISOLONE
     Indication: RHEUMATOID VASCULITIS
     Dosage: 5 MG, QD
     Route: 048
     Dates: start: 1996
  9. ALFAROL [Concomitant]
     Active Substance: ALFACALCIDOL
     Indication: OSTEOPOROSIS PROPHYLAXIS
     Dosage: 1 ?G, QD
     Route: 048
     Dates: start: 20130415
  10. GOSHAJINKIGAN [Concomitant]
     Active Substance: HERBALS
     Indication: RHEUMATOID VASCULITIS
     Dosage: 2.5 G, BID
     Route: 048
     Dates: start: 20161222
  11. ACTEMRA [Suspect]
     Active Substance: TOCILIZUMAB
     Indication: RHEUMATOID VASCULITIS
     Dosage: 450.4 MG, QD
     Route: 041
     Dates: start: 200811
  12. LOXONIN TAPE [Concomitant]
     Indication: RHEUMATOID VASCULITIS
     Dosage: 100 MG, QD
     Route: 062
     Dates: start: 20081210

REACTIONS (2)
  - Subarachnoid haemorrhage [Fatal]
  - Ruptured cerebral aneurysm [Fatal]

NARRATIVE: CASE EVENT DATE: 20161228
